FAERS Safety Report 7031581-X (Version None)
Quarter: 2010Q4

REPORT INFORMATION
  Report Type: 
  Country: None (occurrence: None)
  Receive Date: 20101005
  Receipt Date: 20101005
  Transmission Date: 20110411
  Serious: Yes (Hospitalization)
  Sender: FDA-Public Use
  Company Number: None

PATIENT
  Sex: Female
  Weight: 70.2 kg

DRUGS (3)
  1. CARBOPLATIN [Suspect]
     Dosage: 528 MG
  2. TAXOTERE [Suspect]
  3. TAXOL [Suspect]

REACTIONS (10)
  - ABDOMINAL PAIN [None]
  - ASTHENIA [None]
  - BACTERAEMIA [None]
  - BLOOD PRESSURE DECREASED [None]
  - CHILLS [None]
  - HYPOPHAGIA [None]
  - KLEBSIELLA INFECTION [None]
  - NAUSEA [None]
  - PYREXIA [None]
  - VOMITING [None]
